FAERS Safety Report 5652410-2 (Version None)
Quarter: 2008Q1

REPORT INFORMATION
  Report Type: 
  Country: None (occurrence: None)
  Receive Date: 20080305
  Receipt Date: 20080305
  Transmission Date: 20080703
  Serious: Yes (Life-Threatening, Other)
  Sender: FDA-Public Use
  Company Number: None

PATIENT
  Sex: Female
  Weight: 86.1834 kg

DRUGS (2)
  1. METFORMIN HCL [Suspect]
     Indication: TYPE 2 DIABETES MELLITUS
     Dosage: 1000MG BID ORAL
     Route: 048
     Dates: start: 20070901, end: 20080120
  2. GLUCOPHAGE [Suspect]

REACTIONS (3)
  - DIABETES MELLITUS INADEQUATE CONTROL [None]
  - REACTION TO DRUG EXCIPIENTS [None]
  - THERAPEUTIC RESPONSE UNEXPECTED WITH DRUG SUBSTITUTION [None]
